FAERS Safety Report 6918223-6 (Version None)
Quarter: 2010Q3

REPORT INFORMATION
  Report Type: 
  Country: None (occurrence: None)
  Receive Date: 20100806
  Receipt Date: 20100720
  Transmission Date: 20110219
  Serious: Yes (Other)
  Sender: FDA-Public Use
  Company Number: 00000270

PATIENT
  Sex: Male

DRUGS (1)
  1. ZOLPIDEM TARTRATE [Suspect]
     Indication: STRESS
     Dates: start: 20100621, end: 20100621

REACTIONS (5)
  - ABNORMAL BEHAVIOUR [None]
  - DEMENTIA [None]
  - MENTAL DISORDER [None]
  - SLEEP TALKING [None]
  - SOMNAMBULISM [None]
